FAERS Safety Report 22606933 (Version 1)
Quarter: 2023Q2

REPORT INFORMATION
  Report Type: Report from Study
  Country: IT (occurrence: IT)
  Receive Date: 20230615
  Receipt Date: 20230615
  Transmission Date: 20230721
  Serious: Yes (Hospitalization, Other)
  Sender: FDA-Public Use
  Company Number: None

PATIENT
  Age: 85 Year
  Sex: Female

DRUGS (6)
  1. EDOXABAN [Suspect]
     Active Substance: EDOXABAN
     Indication: Arrhythmia prophylaxis
     Dosage: 60 MG, QD
     Route: 048
     Dates: start: 20200701, end: 20221104
  2. RAMIPRIL [Concomitant]
     Active Substance: RAMIPRIL
     Indication: Hypertension
     Dosage: 2.5 MG
     Route: 048
     Dates: start: 20210221
  3. PANTOPRAZOLE SODIUM [Concomitant]
     Active Substance: PANTOPRAZOLE SODIUM
     Indication: Gastrooesophageal reflux disease
     Dosage: 40 MG
     Route: 048
     Dates: start: 20210221
  4. BISOPROLOL FUMARATE [Concomitant]
     Active Substance: BISOPROLOL FUMARATE
     Indication: Hypertension
     Dosage: 1.25 MG
     Route: 048
     Dates: start: 20200701
  5. LASIX [Concomitant]
     Active Substance: FUROSEMIDE
     Indication: Oedema due to cardiac disease
     Dosage: 125 MG
     Route: 048
     Dates: start: 20210221
  6. CANRENOATE POTASSIUM [Concomitant]
     Active Substance: CANRENOATE POTASSIUM
     Indication: Hyperaldosteronism
     Dosage: 50 MG
     Route: 048

REACTIONS (8)
  - International normalised ratio increased [Recovered/Resolved]
  - Melaena [Recovered/Resolved]
  - Blood loss anaemia [Recovering/Resolving]
  - Gastrointestinal haemorrhage [Recovered/Resolved]
  - Blood creatinine increased [Recovering/Resolving]
  - Hypotension [Recovered/Resolved]
  - Alanine aminotransferase decreased [Recovering/Resolving]
  - Blood urea increased [Recovering/Resolving]

NARRATIVE: CASE EVENT DATE: 20221104
